FAERS Safety Report 5132574-X (Version None)
Quarter: 2006Q4

REPORT INFORMATION
  Report Type: 
  Country: None (occurrence: None)
  Receive Date: 20061020
  Receipt Date: 20061020
  Transmission Date: 20070319
  Serious: Yes (Death)
  Sender: FDA-Public Use
  Company Number: None

PATIENT
  Age: 72 Year
  Sex: Female
  Weight: 72.5755 kg

DRUGS (1)
  1. PACERONE [Suspect]
     Dosage: 200 MG   DAILY   PO
     Route: 048
     Dates: start: 20060415, end: 20061012

REACTIONS (8)
  - ASTHENIA [None]
  - GENERALISED OEDEMA [None]
  - LABORATORY TEST ABNORMAL [None]
  - PNEUMONIA [None]
  - PULMONARY HAEMORRHAGE [None]
  - PULMONARY TOXICITY [None]
  - RASH [None]
  - SKIN HAEMORRHAGE [None]
